FAERS Safety Report 6478356-8 (Version None)
Quarter: 2009Q4

REPORT INFORMATION
  Report Type: 
  Country: None (occurrence: None)
  Receive Date: 20091207
  Receipt Date: 20091204
  Transmission Date: 20100525
  Serious: Yes (Hospitalization)
  Sender: FDA-Public Use
  Company Number: BE-WYE-G05073509

PATIENT

DRUGS (1)
  1. TYGACIL [Suspect]
     Dosage: NOT PROVIDED
     Route: 042
     Dates: start: 20090101, end: 20090101

REACTIONS (2)
  - FOLLICULITIS [None]
  - HYPERSENSITIVITY [None]
